FAERS Safety Report 13395205 (Version 1)
Quarter: 2017Q1

REPORT INFORMATION
  Report Type: Spontaneous
  Country: US (occurrence: US)
  Receive Date: 20170331
  Receipt Date: 20170331
  Transmission Date: 20170429
  Serious: No
  Sender: FDA-Public Use
  Company Number: None

PATIENT
  Age: 52 Year
  Sex: Female

DRUGS (2)
  1. EZETIMIBE. [Suspect]
     Active Substance: EZETIMIBE
     Indication: BLOOD CHOLESTEROL ABNORMAL
     Dosage: ?          QUANTITY:1 TABLET(S);?
     Route: 048
     Dates: start: 20170329, end: 20170331
  2. ESTROGEN PATCH [Concomitant]
     Active Substance: ESTRADIOL

REACTIONS (5)
  - Myalgia [None]
  - Abdominal pain upper [None]
  - Pain in extremity [None]
  - Back pain [None]
  - Chest pain [None]

NARRATIVE: CASE EVENT DATE: 20170329
